FAERS Safety Report 20172987 (Version 1)
Quarter: 2021Q4

REPORT INFORMATION
  Report Type: Report from Study
  Country: DE (occurrence: DE)
  Receive Date: 20211211
  Receipt Date: 20211211
  Transmission Date: 20220304
  Serious: Yes (Hospitalization, Other)
  Sender: FDA-Public Use
  Company Number: DE-NOVARTISPH-NVSC2021DE136780

PATIENT
  Sex: Female
  Weight: 81 kg

DRUGS (19)
  1. COSENTYX [Suspect]
     Active Substance: SECUKINUMAB
     Indication: Psoriatic arthropathy
     Dosage: 150 MG, ONCE/SINGLE
     Route: 065
     Dates: start: 20210415, end: 20210415
  2. COSENTYX [Suspect]
     Active Substance: SECUKINUMAB
     Dosage: 150 MG, ONCE/SINGLE
     Route: 065
     Dates: start: 20210422, end: 20210422
  3. COSENTYX [Suspect]
     Active Substance: SECUKINUMAB
     Dosage: 150 MG, ONCE/SINGLE
     Route: 065
     Dates: start: 20210429, end: 20210429
  4. COSENTYX [Suspect]
     Active Substance: SECUKINUMAB
     Dosage: 150 MG, ONCE/SINGLE
     Route: 065
     Dates: start: 20210506, end: 20210506
  5. COSENTYX [Suspect]
     Active Substance: SECUKINUMAB
     Dosage: 150 MG, ONCE/SINGLE
     Route: 065
     Dates: start: 20210513, end: 20210513
  6. COSENTYX [Suspect]
     Active Substance: SECUKINUMAB
     Dosage: 150 MG, ONCE/SINGLE
     Route: 065
  7. COSENTYX [Suspect]
     Active Substance: SECUKINUMAB
     Dosage: 150 MG, ONCE/SINGLE
     Route: 065
  8. COSENTYX [Suspect]
     Active Substance: SECUKINUMAB
     Dosage: 150 MG, ONCE/SINGLE
     Route: 065
  9. COSENTYX [Suspect]
     Active Substance: SECUKINUMAB
     Dosage: 150 MG, ONCE/SINGLE
     Route: 065
  10. COSENTYX [Suspect]
     Active Substance: SECUKINUMAB
     Dosage: 150 MG, ONCE/SINGLE
     Route: 065
  11. LEVOTHYROXINE SODIUM [Concomitant]
     Active Substance: LEVOTHYROXINE SODIUM
     Indication: Goitre
     Dosage: 50 UG (PER TABLET), QD (ONCE IN MORNING)
     Route: 048
     Dates: start: 20171026
  12. CHOLECALCIFEROL [Concomitant]
     Active Substance: CHOLECALCIFEROL
     Indication: Osteoporosis prophylaxis
     Dosage: 20000 IU (1X 20 MG PER CAPSULE), QW
     Route: 048
     Dates: start: 20200901
  13. FOSTER [Concomitant]
     Active Substance: BECLOMETHASONE\FORMOTEROL
     Indication: Asthma
     Dosage: 1 DF (100/6 UG), TWICE DAILY OR ONCE DAILY IN EVENING (METERED DOSE INHALER/ PRESSURE GAS INHALATION
     Route: 055
     Dates: start: 20200901
  14. PANTOPRAZOLE [Concomitant]
     Active Substance: PANTOPRAZOLE
     Indication: Gastric disorder
     Dosage: 20 MG, PRN
     Route: 048
     Dates: start: 20200901
  15. PAROXETINE HYDROCHLORIDE [Concomitant]
     Active Substance: PAROXETINE HYDROCHLORIDE
     Indication: Depression
     Dosage: 30 MG, QD (IN MORNING)
     Route: 048
     Dates: start: 20200901
  16. PANTOPRAZOLE SODIUM [Concomitant]
     Active Substance: PANTOPRAZOLE SODIUM
     Indication: Product used for unknown indication
     Dosage: 40 MG (ENTERIC-COATED TABLET), QD (DAILY EVENING)
     Route: 065
  17. LUMIGAN [Concomitant]
     Active Substance: BIMATOPROST
     Indication: Product used for unknown indication
     Dosage: 0.1 MG/ML (1 UNIT), QD (IN EVENING)
     Route: 065
  18. OMNI BIOTIC 6 [Concomitant]
     Indication: Product used for unknown indication
     Dosage: 1 DOSAGE FORM, QD (IN MORNING)
     Route: 065
  19. PAROXETINE [Concomitant]
     Active Substance: PAROXETINE
     Indication: Depression
     Dosage: 1.5 DOSAGE FORM (1 ? X20 MG), QD (IN MORNING)
     Route: 065

REACTIONS (14)
  - Wound infection staphylococcal [Recovered/Resolved with Sequelae]
  - Emphysema [Unknown]
  - Joint injury [Unknown]
  - Empyema [Unknown]
  - Joint destruction [Unknown]
  - Osteitis [Unknown]
  - Joint swelling [Unknown]
  - Paronychia [Recovered/Resolved with Sequelae]
  - Pain [Unknown]
  - Swelling [Unknown]
  - Osteoarthritis [Unknown]
  - Exostosis [Unknown]
  - Gastrointestinal disorder [Unknown]
  - Osteolysis [Unknown]

NARRATIVE: CASE EVENT DATE: 20210501
